FAERS Safety Report 16955837 (Version 2)
Quarter: 2021Q1

REPORT INFORMATION
  Report Type: Spontaneous
  Country: HU (occurrence: HU)
  Receive Date: 20191024
  Receipt Date: 20210323
  Transmission Date: 20210419
  Serious: Yes (Death, Hospitalization)
  Sender: FDA-Public Use
  Company Number: HU-JNJFOC-20191019352

PATIENT
  Age: 5 Decade
  Sex: Female
  Weight: 40 kg

DRUGS (1)
  1. STELARA [Suspect]
     Active Substance: USTEKINUMAB
     Indication: CROHN^S DISEASE
     Dosage: 2X130 MG
     Route: 042
     Dates: start: 201909

REACTIONS (3)
  - Candida infection [Not Recovered/Not Resolved]
  - Septic shock [Fatal]
  - Acute respiratory distress syndrome [Fatal]
